FAERS Safety Report 17818380 (Version 1)
Quarter: 2020Q2

REPORT INFORMATION
  Report Type: Spontaneous
  Country: NL (occurrence: FR)
  Receive Date: 20200522
  Receipt Date: 20200522
  Transmission Date: 20200714
  Serious: Yes (Life-Threatening)
  Sender: FDA-Public Use
  Company Number: FR-FRESENIUS KABI-FK202005080

PATIENT
  Age: 19 Year
  Sex: Male

DRUGS (2)
  1. LIDOCAINE (MANUFACTURER UNKNOWN) [Suspect]
     Active Substance: LIDOCAINE
     Indication: BIOPSY
     Dosage: UNSPECIFIED
     Route: 042
     Dates: start: 20190507, end: 20190507
  2. IOBITRIDOL [Suspect]
     Active Substance: IOBITRIDOL
     Indication: SCAN WITH CONTRAST
     Dosage: UNSPECIFIED
     Route: 042
     Dates: start: 20190507, end: 20190507

REACTIONS (1)
  - Anaphylactic shock [Recovered/Resolved]

NARRATIVE: CASE EVENT DATE: 20190507
